FAERS Safety Report 5132638-0 (Version None)
Quarter: 2006Q4

REPORT INFORMATION
  Report Type: 
  Country: None (occurrence: None)
  Receive Date: 20061017
  Receipt Date: 20061002
  Transmission Date: 20070319
  Serious: Yes (Life-Threatening, Hospitalization, Disabling)
  Sender: FDA-Public Use
  Company Number: GB200610000369

PATIENT
  Age: 64 Year
  Sex: Male
  Weight: 100 kg

DRUGS (5)
  1. XIGRIS [Suspect]
     Indication: MULTI-ORGAN FAILURE
     Dosage: 24 UG, OTHER, INTRAVENOUS
     Route: 042
     Dates: start: 20060827, end: 20060830
  2. HEPARIN [Concomitant]
  3. MEROPENEM (MEROPENEM) [Concomitant]
  4. SALBUTAMOL (SALBUTAMOL) [Concomitant]
  5. PIPERACILLIN SODIUM AND TAZOBACTAM SODIUM [Concomitant]

REACTIONS (3)
  - HAEMORRHAGE INTRACRANIAL [None]
  - NERVOUS SYSTEM DISORDER [None]
  - THROMBOCYTOPENIA [None]
